FAERS Safety Report 4860623-2 (Version None)
Quarter: 2005Q4

REPORT INFORMATION
  Report Type: 
  Country: None (occurrence: None)
  Receive Date: 20051216
  Receipt Date: 20051128
  Transmission Date: 20060501
  Serious: Yes (Other)
  Sender: FDA-Public Use
  Company Number: 200513732BCC

PATIENT
  Age: 32 Year
  Sex: Female
  Weight: 69.8539 kg

DRUGS (1)
  1. ALEVE (CAPLET) [Suspect]
     Indication: TOOTHACHE
     Dosage: 220 MG, BID, ORAL
     Route: 048
     Dates: start: 20050913

REACTIONS (4)
  - HYPOAESTHESIA ORAL [None]
  - NERVE INJURY [None]
  - SPEECH DISORDER [None]
  - SWELLING FACE [None]
